FAERS Safety Report 4676460-8 (Version None)
Quarter: 2005Q2

REPORT INFORMATION
  Report Type: 
  Country: None (occurrence: None)
  Receive Date: 20050525
  Receipt Date: 20050512
  Transmission Date: 20051028
  Serious: Yes (Death, Life-Threatening)
  Sender: FDA-Public Use
  Company Number: 2005045334

PATIENT
  Age: 59 Year
  Sex: Male
  Weight: 60 kg

DRUGS (10)
  1. DOXORUBICIN HCL [Suspect]
     Indication: HODGKIN'S DISEASE
     Dosage: 62 MG (62 MG, DAY 1,
     Dates: start: 20050128
  2. SOLU-MEDROL [Suspect]
     Indication: ILL-DEFINED DISORDER
     Dosage: 71 MG (71 MG, DAY 1-DAY 5,
     Dates: start: 20050128, end: 20050201
  3. CISPLATIN [Suspect]
     Indication: HODGKIN'S DISEASE
     Dosage: 58 MG (58 MG, DAY 1 - DAY 3,
     Dates: start: 20050128, end: 20050130
  4. ETOPOSIDE [Suspect]
     Indication: BLOOD MAGNESIUM
     Dosage: 180 MG (180 MG, DAY - DAY3,
     Dates: start: 20050128, end: 20050130
  5. VINCRISTINE [Suspect]
     Indication: HODGKIN'S DISEASE
     Dosage: 2 MG (2 MG, DAY 1 CYCLIC)
     Dates: start: 20050128
  6. GEMCITABINE HYDROCHLORIDE [Suspect]
     Indication: HODGKIN'S DISEASE
     Dosage: 1786 MG (1786 MG, DAY 1
     Dates: start: 20050128
  7. CLOPIDOGREL BISULFATE [Concomitant]
  8. ONDANSETRON [Concomitant]
  9. ZOCOR [Concomitant]
  10. COMBIVENT [Concomitant]

REACTIONS (13)
  - ACUTE RESPIRATORY DISTRESS SYNDROME [None]
  - AGNOSIA [None]
  - APHASIA [None]
  - CARDIAC ARREST [None]
  - COMA [None]
  - CONFUSIONAL STATE [None]
  - DYSPHAGIA [None]
  - FALL [None]
  - FEBRILE BONE MARROW APLASIA [None]
  - PERSONALITY CHANGE [None]
  - PULMONARY CONGESTION [None]
  - SPEECH DISORDER [None]
  - VITAMIN B1 DEFICIENCY [None]
